FAERS Safety Report 21666327 (Version 1)
Quarter: 2022Q4

REPORT INFORMATION
  Report Type: Spontaneous
  Country: KR (occurrence: KR)
  Receive Date: 20221201
  Receipt Date: 20221201
  Transmission Date: 20230113
  Serious: Yes (Death, Hospitalization)
  Sender: FDA-Public Use
  Company Number: KR-009507513-2211KOR009464

PATIENT
  Age: 73 Year
  Sex: Female
  Weight: 69.1 kg

DRUGS (16)
  1. PEMBROLIZUMAB [Suspect]
     Active Substance: PEMBROLIZUMAB
     Indication: Endometrial cancer
     Dosage: 200 MILLIGRAM
     Route: 042
     Dates: start: 20220802
  2. PEMBROLIZUMAB [Suspect]
     Active Substance: PEMBROLIZUMAB
     Dosage: 200 UNK
     Route: 042
     Dates: start: 20220823
  3. PEMBROLIZUMAB [Suspect]
     Active Substance: PEMBROLIZUMAB
     Dosage: 200 UNK
     Route: 042
     Dates: start: 20220913
  4. PEMBROLIZUMAB [Suspect]
     Active Substance: PEMBROLIZUMAB
     Dosage: 200 UNK
     Route: 042
     Dates: start: 20221004, end: 20221028
  5. LENVATINIB MESYLATE [Suspect]
     Active Substance: LENVATINIB MESYLATE
     Indication: Endometrial cancer
     Dosage: 20 MILLIGRAM
     Route: 048
     Dates: start: 20220802, end: 20221028
  6. LINAGLIPTIN [Concomitant]
     Active Substance: LINAGLIPTIN
     Indication: Diabetes mellitus
     Dosage: TAB, 5 MG
     Route: 048
     Dates: start: 2010
  7. SAMIK GLICLAZIDE [Concomitant]
     Indication: Diabetes mellitus
     Dosage: 30 MILLIGRAM
     Route: 048
     Dates: start: 2010
  8. DONGSUNG METFORMIN HCL [Concomitant]
     Indication: Diabetes mellitus
     Dosage: 500 MILLIGRAM
     Route: 048
     Dates: start: 2010
  9. LIVALO [Concomitant]
     Active Substance: PITAVASTATIN CALCIUM
     Indication: Hyperlipidaemia
     Dosage: 2 MILLIGRAM
     Dates: start: 2010
  10. ZELDOX [Concomitant]
     Active Substance: ZIPRASIDONE
     Indication: Schizophrenia
     Dosage: 20 MILLIGRAM
     Route: 048
     Dates: start: 2007
  11. NEURONTIN [Concomitant]
     Active Substance: GABAPENTIN
     Indication: Polyneuropathy
     Dosage: 300 MILLIGRAM
     Route: 048
     Dates: start: 202104
  12. CARVEDILOL [Concomitant]
     Active Substance: CARVEDILOL
     Indication: Prophylaxis
     Dosage: 12.5 MILLIGRAM
     Route: 048
     Dates: start: 20220925, end: 20221031
  13. ADALAT [Concomitant]
     Active Substance: NIFEDIPINE
     Indication: Prophylaxis
     Dosage: 1 DOSAGE FORM
     Route: 048
     Dates: start: 20220925, end: 20221031
  14. KANARB [Concomitant]
     Indication: Prophylaxis
     Dosage: 60 MILLIGRAM
     Route: 048
     Dates: start: 20220925, end: 20221031
  15. MIRABEGRON [Concomitant]
     Active Substance: MIRABEGRON
     Indication: Prophylaxis
     Dosage: 50 MILLIGRAM
     Route: 048
     Dates: start: 20220925, end: 20221031
  16. CYMBALTA [Concomitant]
     Active Substance: DULOXETINE HYDROCHLORIDE
     Indication: Polyneuropathy
     Dosage: 30 MILLIGRAM
     Route: 048
     Dates: start: 202104

REACTIONS (1)
  - Abdominal distension [Fatal]

NARRATIVE: CASE EVENT DATE: 20221031
